FAERS Safety Report 4951363-X (Version None)
Quarter: 2006Q1

REPORT INFORMATION
  Report Type: 
  Country: None (occurrence: None)
  Receive Date: 20060317
  Receipt Date: 20060228
  Transmission Date: 20060701
  Serious: Yes (Other)
  Sender: FDA-Public Use
  Company Number: DE200602001752

PATIENT
  Age: 75 Year
  Sex: Female
  Weight: 62.2 kg

DRUGS (8)
  1. CYMBALTA [Suspect]
     Indication: DEPRESSION
     Dosage: 30 MG, EACH MORNING, ORAL
     Route: 048
     Dates: start: 20060124, end: 20060130
  2. PLAVIX [Concomitant]
  3. MIRTAZAPINE [Concomitant]
  4. RAMIPRIL [Concomitant]
  5. CARMEN (LERCANIDIPINE) [Concomitant]
  6. FOSAMAX  /ITA/ (ALENDRONATE SODIUM) [Concomitant]
  7. UBRETID (DISTIGMINE BROMIDE) [Concomitant]
  8. CALCIUM ^SANDOZ^ (CALCIUM GLUBIONATE) [Concomitant]

REACTIONS (1)
  - HAEMATOMA [None]
